FAERS Safety Report 7897556-3 (Version None)
Quarter: 2011Q4

REPORT INFORMATION
  Report Type: 
  Country: None (occurrence: None)
  Receive Date: 20111107
  Receipt Date: 20111029
  Transmission Date: 20120403
  Serious: Yes (Other)
  Sender: FDA-Public Use
  Company Number: ES-ELI_LILLY_AND_COMPANY-ES201111000378

PATIENT
  Sex: Male
  Weight: 54 kg

DRUGS (7)
  1. DURAGESIC-100 [Concomitant]
     Indication: PAIN
     Dosage: 25 MCGR/72H
     Route: 062
  2. ZOFRAN [Concomitant]
     Indication: NAUSEA
     Dosage: 4MG/8H
     Route: 048
  3. ALIMTA [Suspect]
     Indication: LUNG NEOPLASM MALIGNANT
     Dosage: UNK
     Route: 042
     Dates: start: 20111024
  4. OMEPRAZOLE [Concomitant]
     Indication: GASTRITIS PROPHYLAXIS
     Dosage: UNK
     Route: 048
  5. ANTALGIN                           /00003801/ [Concomitant]
     Indication: PAIN
     Dosage: 550MG/12H
     Route: 048
  6. PRIMPERAN TAB [Concomitant]
     Indication: NAUSEA
     Dosage: 10MG/12H
     Route: 048
  7. MYCOSTATIN [Concomitant]
     Dosage: 500.000U/8H
     Route: 048

REACTIONS (4)
  - DYSPHAGIA [None]
  - DIZZINESS [None]
  - ODYNOPHAGIA [None]
  - NAUSEA [None]
